FAERS Safety Report 20922811 (Version 1)
Quarter: 2022Q2

REPORT INFORMATION
  Report Type: Spontaneous
  Country: US (occurrence: US)
  Receive Date: 20220607
  Receipt Date: 20220607
  Transmission Date: 20220720
  Serious: No
  Sender: FDA-Public Use
  Company Number: US-ALKEM LABORATORIES LIMITED-US-ALKEM-2022-01593

PATIENT
  Sex: Male

DRUGS (3)
  1. FLUCONAZOLE [Suspect]
     Active Substance: FLUCONAZOLE
     Indication: Stem cell transplant
     Dosage: UNK
     Route: 065
  2. TACROLIMUS [Suspect]
     Active Substance: TACROLIMUS
     Indication: Stem cell transplant
     Dosage: 6 MILLIGRAM, QD
     Route: 060
  3. TACROLIMUS [Suspect]
     Active Substance: TACROLIMUS
     Dosage: 7 MILLIGRAM, QD
     Route: 048

REACTIONS (1)
  - Drug interaction [Unknown]
